FAERS Safety Report 16188954 (Version 2)
Quarter: 2019Q3

REPORT INFORMATION
  Report Type: Spontaneous
  Country: FR (occurrence: FR)
  Receive Date: 20190412
  Receipt Date: 20190910
  Transmission Date: 20191004
  Serious: Yes (Death, Other)
  Sender: FDA-Public Use
  Company Number: FR-ASTELLAS-2019US015589

PATIENT
  Age: 59 Year
  Sex: Male

DRUGS (10)
  1. POSACONAZOLE [Suspect]
     Active Substance: POSACONAZOLE
     Indication: OTITIS EXTERNA FUNGAL
  2. AMBISOME [Suspect]
     Active Substance: AMPHOTERICIN B
     Indication: OSTEOMYELITIS FUNGAL
     Route: 065
  3. TEICOPLANINE MYLAN [Concomitant]
     Active Substance: TEICOPLANIN
     Indication: PRODUCT USED FOR UNKNOWN INDICATION
     Dosage: UNK UNK, UNKNOWN FREQ.
     Route: 065
  4. ISAVUCONAZOLE [Suspect]
     Active Substance: ISAVUCONAZOLE
     Indication: MUCORMYCOSIS
     Route: 065
  5. POSACONAZOLE [Suspect]
     Active Substance: POSACONAZOLE
     Indication: OSTEOMYELITIS FUNGAL
     Route: 065
  6. AMPHOTERICIN B DEOXYCHOLATE [Suspect]
     Active Substance: AMPHOTERICIN B
     Indication: MUCORMYCOSIS
     Route: 065
  7. ISAVUCONAZOLE [Suspect]
     Active Substance: ISAVUCONAZOLE
     Indication: MASTOIDITIS
  8. AMPHOTERICIN B DEOXYCHOLATE [Suspect]
     Active Substance: AMPHOTERICIN B
     Indication: MASTOIDITIS
  9. AMBISOME [Suspect]
     Active Substance: AMPHOTERICIN B
     Indication: OTITIS EXTERNA FUNGAL
  10. TAZOCIN [Concomitant]
     Active Substance: PIPERACILLIN SODIUM\TAZOBACTAM SODIUM
     Indication: PRODUCT USED FOR UNKNOWN INDICATION
     Dosage: UNK UNK, UNKNOWN FREQ.
     Route: 065

REACTIONS (2)
  - Off label use [Recovered/Resolved]
  - Drug ineffective for unapproved indication [Fatal]
